FAERS Safety Report 6036806-5 (Version None)
Quarter: 2009Q1

REPORT INFORMATION
  Report Type: 
  Country: None (occurrence: None)
  Receive Date: 20090114
  Receipt Date: 20090106
  Transmission Date: 20090719
  Serious: Yes (Hospitalization, Other)
  Sender: FDA-Public Use
  Company Number: PHHY2009JP00607

PATIENT
  Age: 74 Year
  Sex: Female

DRUGS (5)
  1. COMTAN [Suspect]
     Indication: DRUG EFFECT DECREASED
     Dosage: 400 MG DAILY
     Route: 048
  2. SYMMETREL [Interacting]
     Dosage: UNK
     Route: 048
  3. LEVODOPA [Interacting]
     Dosage: 400 MG DAILY
     Route: 048
  4. REQUIP [Interacting]
     Dosage: UNK
     Route: 048
  5. EXCEGRAN [Interacting]
     Dosage: 0.5 DF, QD
     Route: 048

REACTIONS (7)
  - BEDRIDDEN [None]
  - DELUSION [None]
  - FALL [None]
  - FRACTURE [None]
  - HALLUCINATION [None]
  - OVERDOSE [None]
  - SURGERY [None]
